FAERS Safety Report 5389934-1 (Version None)
Quarter: 2007Q3

REPORT INFORMATION
  Report Type: 
  Country: None (occurrence: None)
  Receive Date: 20070716
  Receipt Date: 20070716
  Transmission Date: 20080115
  Serious: Yes (Other)
  Sender: FDA-Public Use
  Company Number: None

PATIENT
  Age: 13 Year
  Sex: Female
  Weight: 58.9676 kg

DRUGS (1)
  1. EXTRA STRENGTH TYLENOL [Suspect]
     Indication: HEADACHE
     Dosage: 2 TABLETS FOUR HOURS
     Dates: start: 20070713, end: 20070714

REACTIONS (3)
  - DIZZINESS [None]
  - HEADACHE [None]
  - PARAESTHESIA [None]
